FAERS Safety Report 5361922-0 (Version None)
Quarter: 2007Q2

REPORT INFORMATION
  Report Type: 
  Country: None (occurrence: None)
  Receive Date: 20070619
  Receipt Date: 20070605
  Transmission Date: 20071010
  Serious: Yes (Hospitalization)
  Sender: FDA-Public Use
  Company Number: CA-ELI_LILLY_AND_COMPANY-CA200706001068

PATIENT
  Age: 76 Year
  Sex: Male

DRUGS (5)
  1. FORTEO [Suspect]
     Indication: OSTEOPOROSIS
     Dosage: 20 UG, DAILY (1/D)
     Route: 058
     Dates: start: 20061218, end: 20070526
  2. FORTEO [Suspect]
     Dosage: 20 UG, DAILY (1/D)
     Route: 058
     Dates: start: 20070531
  3. ZOCOR [Concomitant]
  4. PLAVIX [Concomitant]
  5. VITAMIN D [Concomitant]

REACTIONS (2)
  - NEOPLASM MALIGNANT [None]
  - SENSATION OF FOREIGN BODY [None]
